FAERS Safety Report 11349841 (Version 2)
Quarter: 2015Q3

REPORT INFORMATION
  Report Type: Spontaneous
  Country: US (occurrence: US)
  Receive Date: 20150807
  Receipt Date: 20150828
  Transmission Date: 20151125
  Serious: Yes (Other)
  Sender: FDA-Public Use
  Company Number: US-JNJFOC-20150801167

PATIENT
  Sex: Male
  Weight: 70.31 kg

DRUGS (5)
  1. DURAGESIC [Suspect]
     Active Substance: FENTANYL
     Indication: BACK PAIN
     Dosage: 100UG ON ONE DAY AND 50UG ON ANOTHER DAY
     Route: 062
     Dates: start: 2002, end: 2003
  2. DURAGESIC [Suspect]
     Active Substance: FENTANYL
     Indication: BACK PAIN
     Dosage: 75 UG ON ONE DAY AND 75 UG ON THE DAY TWO
     Route: 062
     Dates: start: 2003, end: 2015
  3. PHOSPHATE [Concomitant]
     Active Substance: UNSPECIFIED INGREDIENT
     Indication: SPONDYLITIS
     Route: 065
  4. LORTAB [Concomitant]
     Active Substance: ACETAMINOPHEN\HYDROCODONE BITARTRATE
     Route: 065
  5. TIZANIDINE. [Concomitant]
     Active Substance: TIZANIDINE
     Indication: SPONDYLITIS
     Route: 065

REACTIONS (7)
  - Seizure [Not Recovered/Not Resolved]
  - Feeling hot [Recovered/Resolved]
  - Withdrawal syndrome [Not Recovered/Not Resolved]
  - Hyperhidrosis [Recovered/Resolved]
  - Adverse drug reaction [Unknown]
  - Therapeutic response decreased [Recovered/Resolved]
  - Inappropriate schedule of drug administration [Unknown]

NARRATIVE: CASE EVENT DATE: 2002
